FAERS Safety Report 7198553-6 (Version None)
Quarter: 2010Q4

REPORT INFORMATION
  Report Type: 
  Country: None (occurrence: None)
  Receive Date: 20101227
  Receipt Date: 20101221
  Transmission Date: 20110411
  Serious: Yes (Death)
  Sender: FDA-Public Use
  Company Number: PHBS2007US21852

PATIENT
  Sex: Male

DRUGS (1)
  1. EXJADE [Suspect]
     Dosage: 500 MG, UNK

REACTIONS (4)
  - FATIGUE [None]
  - MUSCULAR DYSTROPHY [None]
  - NAUSEA [None]
  - RESPIRATORY FAILURE [None]
